FAERS Safety Report 9417757 (Version 3)
Quarter: 2013Q4

REPORT INFORMATION
  Report Type: Spontaneous
  Country: GB (occurrence: GB)
  Receive Date: 20130724
  Receipt Date: 20131021
  Transmission Date: 20140711
  Serious: Yes (Death, Other)
  Sender: FDA-Public Use
  Company Number: GB-CUBIST PHARMACEUTICAL, INC.-2013CBST000642

PATIENT
  Sex: 0

DRUGS (5)
  1. CUBICIN [Suspect]
     Indication: ENDOCARDITIS
     Dosage: 6 MG/KG, QOD
     Route: 065
     Dates: start: 20130222
  2. CUBICIN [Suspect]
     Dosage: UNK UNK, UNK
     Route: 065
     Dates: start: 20130419, end: 20130429
  3. LINOZID [Suspect]
     Indication: PRODUCT USED FOR UNKNOWN INDICATION
     Dosage: UNK UNK, UNK
     Route: 065
     Dates: start: 20130222, end: 20130402
  4. MEROPENEM [Suspect]
     Indication: PRODUCT USED FOR UNKNOWN INDICATION
     Dosage: UNK UNK, UNK
     Route: 065
     Dates: start: 20130419, end: 20130429
  5. SODIUM FUSIDAT [Suspect]
     Indication: PRODUCT USED FOR UNKNOWN INDICATION
     Dosage: UNK UNK, UNK
     Route: 065

REACTIONS (8)
  - Death [Fatal]
  - Neurotoxicity [Recovered/Resolved]
  - Somnolence [Unknown]
  - Splenic embolism [Unknown]
  - Pulmonary mass [Unknown]
  - Cardiac valve vegetation [Unknown]
  - Thrombocytopenia [Recovered/Resolved]
  - Anaemia [Recovered/Resolved]
